FAERS Safety Report 9868951 (Version 12)
Quarter: 2019Q4

REPORT INFORMATION
  Report Type: Report from Study
  Country: CA (occurrence: CA)
  Receive Date: 20140205
  Receipt Date: 20191226
  Transmission Date: 20200122
  Serious: Yes (Disabling, Other)
  Sender: FDA-Public Use
  Company Number: CA-ROCHE-1125368

PATIENT
  Age: 50 Year
  Sex: Female
  Weight: 52.21 kg

DRUGS (28)
  1. SOLU-MEDROL [Concomitant]
     Active Substance: METHYLPREDNISOLONE SODIUM SUCCINATE
     Dosage: ONCE
     Route: 042
     Dates: start: 20120910
  2. ACETAMINOPHEN. [Concomitant]
     Active Substance: ACETAMINOPHEN
     Indication: PREMEDICATION
     Route: 048
     Dates: start: 20171106
  3. PULMICORT TURBUHALER [Concomitant]
     Active Substance: BUDESONIDE
  4. RITUXAN [Suspect]
     Active Substance: RITUXIMAB
     Indication: MICROSCOPIC POLYANGIITIS
     Dosage: DATE OF LAST RECEIVED DOSE OF RITUXIMAB: 01/OCT/2012
     Route: 042
     Dates: start: 20120910
  5. RITUXAN [Suspect]
     Active Substance: RITUXIMAB
     Dosage: THIS INFUSION # 15
     Route: 042
     Dates: start: 20171106
  6. BETAHISTINE [Concomitant]
     Active Substance: BETAHISTINE
  7. BENADRYL [Concomitant]
     Active Substance: DIPHENHYDRAMINE HYDROCHLORIDE
     Dosage: ONCE
     Route: 048
     Dates: start: 20120913
  8. PREDNISONE. [Concomitant]
     Active Substance: PREDNISONE
  9. BACLOFEN. [Concomitant]
     Active Substance: BACLOFEN
  10. BENADRYL [Concomitant]
     Active Substance: DIPHENHYDRAMINE HYDROCHLORIDE
     Route: 048
     Dates: start: 20171106
  11. LEVOTHYROXINE. [Concomitant]
     Active Substance: LEVOTHYROXINE
  12. RITUXAN [Suspect]
     Active Substance: RITUXIMAB
     Route: 042
     Dates: start: 20140407
  13. SOLU-MEDROL [Concomitant]
     Active Substance: METHYLPREDNISOLONE SODIUM SUCCINATE
     Route: 042
     Dates: start: 20120913
  14. CITALOPRAM [Concomitant]
     Active Substance: CITALOPRAM HYDROBROMIDE
  15. RITUXAN [Suspect]
     Active Substance: RITUXIMAB
     Indication: LUPUS-LIKE SYNDROME
     Route: 042
     Dates: start: 20120913
  16. TYLENOL [Concomitant]
     Active Substance: ACETAMINOPHEN
     Dosage: ONCE
     Route: 048
     Dates: start: 20120910
  17. TYLENOL [Concomitant]
     Active Substance: ACETAMINOPHEN
     Route: 048
     Dates: start: 20120913
  18. OMEGA 3 [DOCOSAHEXAENOIC ACID;EICOSAPENTAENOIC ACID] [Concomitant]
     Active Substance: DOCONEXENT\ICOSAPENT
  19. FOLIC ACID. [Concomitant]
     Active Substance: FOLIC ACID
  20. DIPHENHYDRAMINE HCL [Concomitant]
     Active Substance: DIPHENHYDRAMINE HYDROCHLORIDE
     Indication: PREMEDICATION
     Route: 048
     Dates: start: 20171106
  21. METHYLPREDNISOLONE. [Concomitant]
     Active Substance: METHYLPREDNISOLONE
     Indication: PREMEDICATION
     Route: 042
     Dates: start: 20171106
  22. PRISTIQ EXTENDED-RELEASE [Concomitant]
     Active Substance: DESVENLAFAXINE SUCCINATE
  23. CRANBERRY [VACCINIUM SPP.] [Concomitant]
  24. VENTOLIN [Concomitant]
     Active Substance: ALBUTEROL SULFATE
  25. METHOTREXATE. [Concomitant]
     Active Substance: METHOTREXATE
     Dosage: METHOTREXATE DOSE INCREASED AFTER FEB/2014
     Route: 065
  26. SYMBICORT [Concomitant]
     Active Substance: BUDESONIDE\FORMOTEROL FUMARATE DIHYDRATE
  27. OMEGA 9 FATTY ACIDS [Concomitant]
  28. DIVALPROEX [Concomitant]
     Active Substance: DIVALPROEX SODIUM

REACTIONS (22)
  - Off label use [Unknown]
  - Intentional product use issue [Unknown]
  - Anxiety [Unknown]
  - Sinusitis [Not Recovered/Not Resolved]
  - Vulvovaginal dryness [Not Recovered/Not Resolved]
  - Fatigue [Unknown]
  - Somnolence [Unknown]
  - Pain in extremity [Unknown]
  - Heart rate increased [Unknown]
  - Haemorrhage [Unknown]
  - Hypokinesia [Unknown]
  - Weight increased [Unknown]
  - Neck pain [Not Recovered/Not Resolved]
  - Infusion related reaction [Recovered/Resolved]
  - Presyncope [Recovered/Resolved]
  - Arthralgia [Unknown]
  - Heart rate decreased [Unknown]
  - Pain in extremity [Recovered/Resolved]
  - Blood pressure increased [Unknown]
  - Sinus disorder [Unknown]
  - Pain in jaw [Recovered/Resolved]
  - Dyspnoea [Not Recovered/Not Resolved]

NARRATIVE: CASE EVENT DATE: 20120914
